FAERS Safety Report 5294575-0 (Version None)
Quarter: 2007Q2

REPORT INFORMATION
  Report Type: 
  Country: None (occurrence: None)
  Receive Date: 20070412
  Receipt Date: 20070329
  Transmission Date: 20071010
  Serious: Yes (Other)
  Sender: FDA-Public Use
  Company Number: PHBS2007BR05236

PATIENT
  Age: 46 Year
  Sex: Female
  Weight: 65 kg

DRUGS (3)
  1. PARIET [Concomitant]
     Indication: REFLUX OESOPHAGITIS
     Dosage: 1 TABLET IN THE MORNING
  2. ZELMAC [Suspect]
     Indication: CONSTIPATION
     Dosage: 2 TABLET EVERY 12 HOURS
     Route: 048
  3. ZELMAC [Suspect]
     Dosage: 1 TABLET EVERY 12 HOURS

REACTIONS (10)
  - ABDOMINAL PAIN [None]
  - DEHYDRATION [None]
  - DIARRHOEA [None]
  - FLATULENCE [None]
  - MALAISE [None]
  - MOUTH ULCERATION [None]
  - OEDEMA MOUTH [None]
  - ORAL DISCOMFORT [None]
  - ORAL PAIN [None]
  - ORAL PRURITUS [None]
